FAERS Safety Report 6781913-2 (Version None)
Quarter: 2010Q2

REPORT INFORMATION
  Report Type: 
  Country: None (occurrence: None)
  Receive Date: 20100621
  Receipt Date: 20100617
  Transmission Date: 20101027
  Serious: Yes (Death)
  Sender: FDA-Public Use
  Company Number: US-ASTRAZENECA-2010SE23073

PATIENT
  Age: 66 Year
  Sex: Female

DRUGS (12)
  1. SEROQUEL [Suspect]
     Indication: AGITATION
     Route: 048
     Dates: start: 20090928
  2. SEROQUEL [Suspect]
     Dosage: 50 MGS
     Route: 048
     Dates: start: 20091013
  3. CYMBALTA [Concomitant]
     Route: 048
  4. GLIPIZIDE [Concomitant]
     Route: 048
  5. NORVASC [Concomitant]
     Route: 048
  6. ZOCOR [Concomitant]
     Route: 048
  7. LISINOPRIL [Concomitant]
     Route: 048
  8. KLONOPIN [Concomitant]
     Route: 048
  9. COUMADIN [Concomitant]
     Route: 048
  10. CATAPRES [Concomitant]
     Route: 048
  11. METFORMIN [Concomitant]
     Route: 048
  12. HCTZ [Concomitant]
     Route: 048

REACTIONS (1)
  - DEATH [None]
